FAERS Safety Report 15152223 (Version 1)
Quarter: 2018Q3

REPORT INFORMATION
  Report Type: Spontaneous
  Country: FR (occurrence: FR)
  Receive Date: 20180717
  Receipt Date: 20180717
  Transmission Date: 20181010
  Serious: Yes (Other)
  Sender: FDA-Public Use
  Company Number: FR-TEVA-2018-FR-927196

PATIENT
  Age: 73 Year
  Sex: Female

DRUGS (5)
  1. TRAMADOL (CHLORHYDRATE DE) [Suspect]
     Active Substance: TRAMADOL HYDROCHLORIDE
     Indication: PAIN
     Route: 048
     Dates: start: 20170707
  2. ACUPAN [Suspect]
     Active Substance: NEFOPAM HYDROCHLORIDE
     Indication: PAIN
     Dosage: NON RENSEIGNEE
     Route: 042
     Dates: start: 20170707, end: 20170719
  3. SPECIAFOLDINE [Suspect]
     Active Substance: FOLIC ACID
     Indication: ALCOHOLISM
     Dosage: 5 MILLIGRAM DAILY; THE MORNING
     Route: 048
     Dates: start: 20170707
  4. OFLOXACINE ARROW [Suspect]
     Active Substance: OFLOXACIN
     Indication: ARTHRITIS BACTERIAL
     Dosage: 400 MILLIGRAM DAILY;
     Route: 048
     Dates: start: 20170714, end: 20170804
  5. RIFADINE [Suspect]
     Active Substance: RIFAMPIN
     Indication: ARTHRITIS BACTERIAL
     Dosage: 1200 MILLIGRAM DAILY; ?MORNING AND EVENING
     Route: 048
     Dates: start: 20170714, end: 20170804

REACTIONS (1)
  - Hyperbilirubinaemia [Recovered/Resolved]

NARRATIVE: CASE EVENT DATE: 20170717
